FAERS Safety Report 8052559-3 (Version None)
Quarter: 2012Q1

REPORT INFORMATION
  Report Type: 
  Country: None (occurrence: None)
  Receive Date: 20120118
  Receipt Date: 20120103
  Transmission Date: 20120608
  Serious: Yes (Hospitalization, Other)
  Sender: FDA-Public Use
  Company Number: US-ENDO PHARMACEUTICALS INC.-SPLN20110130

PATIENT
  Sex: Male
  Weight: 35.412 kg

DRUGS (4)
  1. SUPPRELIN LA [Suspect]
     Indication: PRECOCIOUS PUBERTY
     Route: 058
     Dates: start: 20111122, end: 20111127
  2. NORDITROPIN [Concomitant]
     Indication: BODY HEIGHT BELOW NORMAL
     Dosage: UNK
     Route: 058
     Dates: start: 20110201
  3. ALBUTEROL [Concomitant]
     Indication: ASTHMA
     Dosage: UNK
  4. FLONASE [Concomitant]
     Indication: ASTHMA
     Dosage: UNK
     Route: 045

REACTIONS (1)
  - HYPERSENSITIVITY [None]
